FAERS Safety Report 22835809 (Version 4)
Quarter: 2024Q1

REPORT INFORMATION
  Report Type: Report from Study
  Country: CH (occurrence: CH)
  Receive Date: 20230818
  Receipt Date: 20240305
  Transmission Date: 20240410
  Serious: Yes (Hospitalization)
  Sender: FDA-Public Use
  Company Number: CH-SA-SAC20230324001217

PATIENT
  Age: 53 Year
  Sex: Male

DRUGS (29)
  1. ISATUXIMAB [Suspect]
     Active Substance: ISATUXIMAB
     Indication: Plasma cell myeloma
     Dosage: 10 MG/KG, QW
     Route: 065
     Dates: start: 20220505, end: 20220505
  2. ISATUXIMAB [Suspect]
     Active Substance: ISATUXIMAB
     Dosage: 870 MG, QW
     Dates: start: 20220610, end: 20220622
  3. ISATUXIMAB [Suspect]
     Active Substance: ISATUXIMAB
     Dosage: 870 MG, QW
     Dates: start: 20220623, end: 20220727
  4. ISATUXIMAB [Suspect]
     Active Substance: ISATUXIMAB
     Dosage: 840 MG, BIW
     Dates: start: 20220728, end: 20220824
  5. ISATUXIMAB [Suspect]
     Active Substance: ISATUXIMAB
     Dosage: 860 MG, BIW
     Dates: start: 20220825, end: 20220922
  6. ISATUXIMAB [Suspect]
     Active Substance: ISATUXIMAB
     Dosage: 10 MG/KG, BIW
     Dates: start: 20220923, end: 20221020
  7. ISATUXIMAB [Suspect]
     Active Substance: ISATUXIMAB
     Dosage: 10 MG/KG, BIW
     Dates: start: 20221021, end: 20221130
  8. POMALIDOMIDE [Suspect]
     Active Substance: POMALIDOMIDE
     Indication: Plasma cell myeloma
     Dosage: 4 MG, QD
     Dates: start: 20220505, end: 20220505
  9. POMALIDOMIDE [Suspect]
     Active Substance: POMALIDOMIDE
     Dosage: 4 MG, QD
     Dates: start: 20220610, end: 20220622
  10. POMALIDOMIDE [Suspect]
     Active Substance: POMALIDOMIDE
     Dosage: 4 MG, QD
     Dates: start: 20220623, end: 20220727
  11. POMALIDOMIDE [Suspect]
     Active Substance: POMALIDOMIDE
     Dosage: 4 MG, BIW
     Dates: start: 20220728, end: 20220824
  12. POMALIDOMIDE [Suspect]
     Active Substance: POMALIDOMIDE
     Dosage: 4 MG, BIW
     Dates: start: 20220825, end: 20220922
  13. POMALIDOMIDE [Suspect]
     Active Substance: POMALIDOMIDE
     Dosage: 4 MG, BIW
     Dates: start: 20220923, end: 20221020
  14. POMALIDOMIDE [Suspect]
     Active Substance: POMALIDOMIDE
     Dosage: 4 MG, BIW
     Dates: start: 20221021, end: 20221130
  15. DEXAMETHASONE [Suspect]
     Active Substance: DEXAMETHASONE
     Indication: Plasma cell myeloma
     Dosage: 40 MG, QW
     Dates: start: 20220505, end: 20220505
  16. DEXAMETHASONE [Suspect]
     Active Substance: DEXAMETHASONE
     Dosage: 20 MG, QW
     Dates: start: 20220610, end: 20220622
  17. DEXAMETHASONE [Suspect]
     Active Substance: DEXAMETHASONE
     Dosage: 20 MG, QW
     Dates: start: 20220623, end: 20220727
  18. DEXAMETHASONE [Suspect]
     Active Substance: DEXAMETHASONE
     Dosage: 20 MG, BIW
     Dates: start: 20220728, end: 20220824
  19. DEXAMETHASONE [Suspect]
     Active Substance: DEXAMETHASONE
     Dosage: 20 MG, BIW
     Dates: start: 20220825, end: 20220922
  20. DEXAMETHASONE [Suspect]
     Active Substance: DEXAMETHASONE
     Dosage: 20 MG, BIW
     Dates: start: 20220923, end: 20221020
  21. DEXAMETHASONE [Suspect]
     Active Substance: DEXAMETHASONE
     Dosage: 20 MG, BIW
     Dates: start: 20221021, end: 20221130
  22. METHYLPREDNISOLONE [Concomitant]
     Active Substance: METHYLPREDNISOLONE
     Indication: Thrombosis
     Dosage: EVERY CYCLE
     Dates: start: 20220505
  23. CLEMASTINE [Concomitant]
     Active Substance: CLEMASTINE
     Indication: Thrombosis
     Dosage: EVERY CYCLE
     Dates: start: 20220505
  24. RIVAROXABAN [Concomitant]
     Active Substance: RIVAROXABAN
     Indication: Thrombosis
     Dosage: UNK
     Dates: start: 20190709
  25. LISINOPRIL [Concomitant]
     Active Substance: LISINOPRIL
     Indication: Hypertensive cardiomyopathy
     Dosage: UNK
     Dates: start: 2019
  26. ATORVASTATIN [Concomitant]
     Active Substance: ATORVASTATIN
     Indication: Hypertensive cardiomyopathy
     Dosage: UNK
     Dates: start: 2019
  27. ZOLPIDEM [Concomitant]
     Active Substance: ZOLPIDEM TARTRATE
     Indication: Sleep apnoea syndrome
     Dosage: UNK
     Dates: start: 2015
  28. VALACYCLOVIR HYDROCHLORIDE [Concomitant]
     Active Substance: VALACYCLOVIR HYDROCHLORIDE
     Indication: Prophylaxis
     Dosage: UNK
     Dates: start: 2019
  29. ZOLEDRONIC ACID [Concomitant]
     Active Substance: ZOLEDRONIC ACID

REACTIONS (1)
  - Listeriosis [Recovered/Resolved]

NARRATIVE: CASE EVENT DATE: 20230321
